FAERS Safety Report 4507845-8 (Version None)
Quarter: 2004Q4

REPORT INFORMATION
  Report Type: 
  Country: None (occurrence: None)
  Receive Date: 20041118
  Receipt Date: 20041108
  Transmission Date: 20050328
  Serious: No
  Sender: FDA-Public Use
  Company Number: 2004PK01919

PATIENT
  Age: 31 Year
  Sex: Male

DRUGS (7)
  1. SEROQUEL [Suspect]
     Dosage: 100 - 600 MG
     Dates: start: 20040907, end: 20040910
  2. SEROQUEL [Suspect]
     Dosage: 900 MG DAILY PO
     Route: 048
     Dates: start: 20040911, end: 20040911
  3. SEROQUEL [Suspect]
     Dosage: 1200 MG DAILY PO
     Route: 048
     Dates: start: 20040912, end: 20040920
  4. SEROQUEL [Suspect]
     Dosage: 1350 MG DAILY PO
     Route: 048
     Dates: start: 20040921, end: 20041007
  5. SEROQUEL [Suspect]
     Dosage: 1200 MG DAILY PO
     Route: 048
     Dates: start: 20041008, end: 20041008
  6. SEROQUEL [Suspect]
     Dosage: 600 MG DAILY PO
     Route: 048
     Dates: start: 20041009, end: 20041010
  7. SEROQUEL [Suspect]
     Dosage: 700 MG DAILY PO
     Route: 048
     Dates: start: 20041011

REACTIONS (2)
  - LEUKOPENIA [None]
  - NEUTROPENIA [None]
